FAERS Safety Report 5051923-4 (Version None)
Quarter: 2006Q3

REPORT INFORMATION
  Report Type: 
  Country: None (occurrence: None)
  Receive Date: 20060713
  Receipt Date: 20060713
  Transmission Date: 20061208
  Serious: No
  Sender: FDA-Public Use
  Company Number: None

PATIENT
  Age: 49 Year
  Sex: Male

DRUGS (1)
  1. PROPRANOLOL [Suspect]
     Indication: BLOOD PRESSURE
     Dosage: 60 MG PO QD
     Route: 048

REACTIONS (2)
  - DIZZINESS [None]
  - HALLUCINATION [None]
